FAERS Safety Report 17297565 (Version 1)
Quarter: 2020Q1

REPORT INFORMATION
  Report Type: Spontaneous
  Country: US (occurrence: US)
  Receive Date: 20200121
  Receipt Date: 20200121
  Transmission Date: 20200409
  Serious: No
  Sender: FDA-Public Use
  Company Number: None

PATIENT
  Age: 56 Year
  Sex: Female

DRUGS (5)
  1. ROTUVASTATIN [Concomitant]
  2. CALCIUM [Concomitant]
     Active Substance: CALCIUM
  3. EXCEDRIN [Concomitant]
     Active Substance: ACETAMINOPHEN\ASPIRIN\CAFFEINE
  4. ALIVE MULTI VITAMIN [Concomitant]
  5. EMGALITY [Suspect]
     Active Substance: GALCANEZUMAB-GNLM

REACTIONS (3)
  - Injection site inflammation [None]
  - Injection site erythema [None]
  - Injection site pruritus [None]
